FAERS Safety Report 6144903-9 (Version None)
Quarter: 2009Q2

REPORT INFORMATION
  Report Type: 
  Country: None (occurrence: None)
  Receive Date: 20090402
  Receipt Date: 20090402
  Transmission Date: 20091009
  Serious: Yes (Other)
  Sender: FDA-Public Use
  Company Number: None

PATIENT
  Age: 14 Year
  Sex: Female
  Weight: 49.8957 kg

DRUGS (1)
  1. CONCERTA [Suspect]
     Indication: ATTENTION DEFICIT/HYPERACTIVITY DISORDER
     Dosage: 72MG 1 DAILY
     Dates: start: 20040101, end: 20090325

REACTIONS (9)
  - ABDOMINAL PAIN [None]
  - DIZZINESS [None]
  - DYSGRAPHIA [None]
  - EDUCATIONAL PROBLEM [None]
  - HEADACHE [None]
  - INSOMNIA [None]
  - NAUSEA [None]
  - TREMOR [None]
  - WITHDRAWAL SYNDROME [None]
